FAERS Safety Report 9374367 (Version 1)
Quarter: 2013Q2

REPORT INFORMATION
  Report Type: Spontaneous
  Country: US (occurrence: US)
  Receive Date: 20130628
  Receipt Date: 20130628
  Transmission Date: 20140414
  Serious: Yes (Other)
  Sender: FDA-Public Use
  Company Number: PHEH2013US013743

PATIENT
  Age: 47 Year
  Sex: Female

DRUGS (1)
  1. GILENYA [Suspect]
     Dosage: UNK
     Route: 048
     Dates: end: 2012

REACTIONS (2)
  - Colitis ischaemic [Unknown]
  - Convulsion [Unknown]
